FAERS Safety Report 6754955-0 (Version None)
Quarter: 2010Q2

REPORT INFORMATION
  Report Type: 
  Country: None (occurrence: None)
  Receive Date: 20100602
  Receipt Date: 20100524
  Transmission Date: 20101027
  Serious: Yes (Other)
  Sender: FDA-Public Use
  Company Number: JHP201000176

PATIENT
  Age: 38 Year
  Sex: Female

DRUGS (4)
  1. EPINEPHRINE [Suspect]
     Indication: ASTHMA
     Dosage: 0.3 MG X 2 DOSES, SUBCUTANEOUS
     Route: 058
  2. METHYLPREDNISOLONE ACETATE [Concomitant]
  3. SALBUTAMOL (SALBUTAMOL SULFATE) INHALER [Concomitant]
  4. IPRATROPIUM (IMPRATROPIUM) INHALER [Concomitant]

REACTIONS (3)
  - MYOCARDIAL INFARCTION [None]
  - RESPIRATORY DISTRESS [None]
  - SINUS TACHYCARDIA [None]
